FAERS Safety Report 14067979 (Version 1)
Quarter: 2017Q4

REPORT INFORMATION
  Report Type: Spontaneous
  Country: US (occurrence: US)
  Receive Date: 20171010
  Receipt Date: 20171010
  Transmission Date: 20180321
  Serious: Yes (Hospitalization)
  Sender: FDA-Public Use
  Company Number: US-BEH-2017084150

PATIENT
  Sex: Male
  Weight: 129.25 kg

DRUGS (19)
  1. HIZENTRA [Suspect]
     Active Substance: HUMAN IMMUNOGLOBULIN G
     Dosage: UNK
     Route: 058
  2. LIDOCAINE/PRILOCAINE [Concomitant]
     Active Substance: LIDOCAINE\PRILOCAINE
  3. ASPIRIN. [Concomitant]
     Active Substance: ASPIRIN
  4. EPINEPHRINE. [Concomitant]
     Active Substance: EPINEPHRINE
  5. HYDROCHLOROTHIAZIDE. [Concomitant]
     Active Substance: HYDROCHLOROTHIAZIDE
  6. CITALOPRAM [Concomitant]
     Active Substance: CITALOPRAM HYDROBROMIDE
  7. VITAMIN D                          /00107901/ [Concomitant]
     Active Substance: ERGOCALCIFEROL
  8. PRAVASTATIN. [Concomitant]
     Active Substance: PRAVASTATIN
  9. GABAPENTIN. [Concomitant]
     Active Substance: GABAPENTIN
  10. ACETAMINOPHEN. [Concomitant]
     Active Substance: ACETAMINOPHEN
  11. TRAZODONE [Concomitant]
     Active Substance: TRAZODONE HYDROCHLORIDE
  12. PRILOSEC [Concomitant]
     Active Substance: OMEPRAZOLE MAGNESIUM
  13. CARVEDILOL. [Concomitant]
     Active Substance: CARVEDILOL
  14. MULTIVITAMINS [Concomitant]
     Active Substance: VITAMINS
  15. DIPHENHYDRAMINE. [Concomitant]
     Active Substance: DIPHENHYDRAMINE
  16. MAVIK [Concomitant]
     Active Substance: TRANDOLAPRIL
  17. HIZENTRA [Suspect]
     Active Substance: HUMAN IMMUNOGLOBULIN G
     Indication: IMMUNODEFICIENCY COMMON VARIABLE
     Dosage: 10 G, QW
     Route: 058
     Dates: start: 20121114
  18. AUGMENTIN [Concomitant]
     Active Substance: AMOXICILLIN\CLAVULANATE POTASSIUM
  19. EFFIENT [Concomitant]
     Active Substance: PRASUGREL HYDROCHLORIDE

REACTIONS (2)
  - Angina pectoris [Unknown]
  - Chest pain [Unknown]
